FAERS Safety Report 17954467 (Version 1)
Quarter: 2020Q2

REPORT INFORMATION
  Report Type: Report from Study
  Country: US (occurrence: US)
  Receive Date: 20200629
  Receipt Date: 20200629
  Transmission Date: 20200714
  Serious: Yes (Hospitalization)
  Sender: FDA-Public Use
  Company Number: US-TAIHO ONCOLOGY  INC-EU-2020-02290

PATIENT
  Age: 50 Year
  Sex: Male
  Weight: 95.34 kg

DRUGS (9)
  1. STIVARGA [Suspect]
     Active Substance: REGORAFENIB
     Indication: PRODUCT USED FOR UNKNOWN INDICATION
  2. LONSURF [Suspect]
     Active Substance: TIPIRACIL HYDROCHLORIDE\TRIFLURIDINE
     Indication: COLON CANCER
     Dosage: CYCLE UNKNOWN
     Route: 048
     Dates: start: 20190120
  3. XARELTO [Concomitant]
     Active Substance: RIVAROXABAN
  4. ASPIRIN 81 [Concomitant]
     Active Substance: ASPIRIN
     Dosage: DELAYED RELEASE TABLETS
  5. IRON [Concomitant]
     Active Substance: IRON
     Dosage: 159 (49) MG, EXTENDED RELEASE TABLETS
  6. VITAMIN C [Concomitant]
     Active Substance: ASCORBIC ACID
  7. NORCO [Concomitant]
     Active Substance: ACETAMINOPHEN\HYDROCODONE BITARTRATE
     Dosage: FORM STRENGTH : 10/325 MG
  8. LISINOPRIL. [Concomitant]
     Active Substance: LISINOPRIL
  9. VITAMIN D2 [Concomitant]
     Active Substance: ERGOCALCIFEROL

REACTIONS (2)
  - Intestinal obstruction [Unknown]
  - Renal failure [Unknown]

NARRATIVE: CASE EVENT DATE: 202006
